FAERS Safety Report 10290285 (Version 1)
Quarter: 2014Q3

REPORT INFORMATION
  Report Type: Spontaneous
  Country: GB (occurrence: None)
  Receive Date: 20140708
  Receipt Date: 20140708
  Transmission Date: 20150326
  Serious: Yes (Life-Threatening, Disabling, Other)
  Sender: FDA-Public Use
  Company Number: AUR-APL-2014-07076

PATIENT
  Age: 43 Year
  Sex: Female

DRUGS (3)
  1. METFORMIN [Concomitant]
     Active Substance: METFORMIN HYDROCHLORIDE
  2. LYMECYCLINE (LYMECYCLINE) [Concomitant]
     Active Substance: LYMECYCLINE
  3. MIRTAZAPINE. [Suspect]
     Active Substance: MIRTAZAPINE
     Indication: DEPRESSION
     Route: 048
     Dates: start: 20140423

REACTIONS (13)
  - Malaise [None]
  - Blood urine present [None]
  - Eating disorder [None]
  - Affect lability [None]
  - Withdrawal syndrome [None]
  - Suicidal ideation [None]
  - Suicidal behaviour [None]
  - Hypertension [None]
  - Hyperhidrosis [None]
  - Tremor [None]
  - Flushing [None]
  - Insomnia [None]
  - Tearfulness [None]

NARRATIVE: CASE EVENT DATE: 20140526
